FAERS Safety Report 7229360-3 (Version None)
Quarter: 2011Q1

REPORT INFORMATION
  Report Type: 
  Country: None (occurrence: None)
  Receive Date: 20110117
  Receipt Date: 20110112
  Transmission Date: 20110831
  Serious: Yes (Hospitalization)
  Sender: FDA-Public Use
  Company Number: A0861777A

PATIENT
  Age: 54 Year
  Sex: Male

DRUGS (2)
  1. AVANDIA [Suspect]
     Dosage: 8MG PER DAY
     Route: 048
     Dates: start: 20070119, end: 20070810
  2. AVANDAMET [Suspect]
     Route: 048
     Dates: start: 20040201, end: 20040927

REACTIONS (1)
  - MYOCARDIAL INFARCTION [None]
